FAERS Safety Report 4263262-X (Version None)
Quarter: 2004Q1

REPORT INFORMATION
  Report Type: 
  Country: None (occurrence: None)
  Receive Date: 20040105
  Receipt Date: 20030930
  Transmission Date: 20041129
  Serious: Yes (Death, Hospitalization)
  Sender: FDA-Public Use
  Company Number: JP-GLAXOSMITHKLINE-B0310835A

PATIENT
  Age: 74 Year
  Sex: Female

DRUGS (19)
  1. TAGAMET [Suspect]
     Indication: GASTRITIS
     Dosage: 600MG PER DAY
     Route: 048
     Dates: start: 19970101
  2. ZYLORIC [Suspect]
     Indication: HYPERURICAEMIA
     Dosage: 200MG PER DAY
     Route: 048
     Dates: start: 20030907, end: 20030913
  3. DICLOFENAC SODIUM [Suspect]
     Indication: SPONDYLOSIS
     Route: 048
     Dates: start: 19970101
  4. FUROSEMIDE [Suspect]
     Indication: CARDIAC FAILURE
     Dosage: 80MG PER DAY
     Route: 048
     Dates: start: 20010101, end: 20030923
  5. ASPIRIN [Concomitant]
     Indication: AGE INDETERMINATE MYOCARDIAL INFARCTION
     Dosage: 100MG PER DAY
     Route: 048
     Dates: start: 20030520, end: 20030923
  6. ISOSORBIDE DINITRATE [Concomitant]
     Indication: ANGINA PECTORIS
     Dosage: 60MG PER DAY
     Route: 048
     Dates: start: 19970101
  7. NITROGLYCERIN [Concomitant]
     Indication: ANGINA PECTORIS
     Dosage: 25MG PER DAY
     Route: 050
     Dates: start: 19970101
  8. METILDIGOXIN [Concomitant]
     Indication: CARDIAC FAILURE
     Dosage: 50G PER DAY
     Route: 048
     Dates: start: 20030826
  9. SPIRONOLACTONE [Concomitant]
     Indication: CARDIAC FAILURE
     Dosage: 50MG PER DAY
     Route: 048
     Dates: start: 20030701, end: 20030923
  10. CALCIUM L-ASPARTATE [Concomitant]
     Indication: OSTEOPOROSIS
     Dosage: 400MG PER DAY
     Route: 048
     Dates: start: 19970101
  11. PL [Concomitant]
     Indication: BRONCHITIS CHRONIC
     Dosage: 3G PER DAY
     Route: 048
     Dates: start: 19980101
  12. SERRAPEPTASE [Concomitant]
     Indication: SKIN LACERATION
     Dosage: 15MG PER DAY
     Route: 048
     Dates: start: 20030826, end: 20030909
  13. CEFDINIR [Concomitant]
     Indication: SKIN LACERATION
     Dosage: 300MG PER DAY
     Route: 048
     Dates: start: 20030826, end: 20030909
  14. DIGOXIN [Concomitant]
     Indication: CARDIAC FAILURE
     Dosage: 125MCG PER DAY
     Route: 048
     Dates: start: 19970101, end: 20030816
  15. ASPIRIN DIALUMINATE [Concomitant]
     Indication: AGE INDETERMINATE MYOCARDIAL INFARCTION
     Dosage: 81MG PER DAY
     Route: 048
     Dates: start: 19970101, end: 20030519
  16. ENALAPRIL MALEATE [Concomitant]
     Indication: HYPERTENSION
     Dosage: 5MG PER DAY
     Route: 048
     Dates: start: 19970101, end: 20030801
  17. PRAVASTATIN SODIUM [Concomitant]
     Indication: HYPERLIPIDAEMIA
     Dosage: 10MG PER DAY
     Route: 048
     Dates: start: 19970101, end: 20030816
  18. MEDIGOXIN [Concomitant]
     Dates: end: 20030923
  19. INSULIN PENMIX 30 PENFILL [Concomitant]

REACTIONS (15)
  - CARDIAC FAILURE CONGESTIVE [None]
  - CELLULITIS [None]
  - CORNEAL SCAR [None]
  - CYANOSIS [None]
  - DECUBITUS ULCER [None]
  - DIABETES MELLITUS INADEQUATE CONTROL [None]
  - ERYTHEMA [None]
  - NECROSIS [None]
  - ORAL PAIN [None]
  - PRURITUS [None]
  - RESPIRATORY ARREST [None]
  - SCAB [None]
  - SKIN DISCOLOURATION [None]
  - STAPHYLOCOCCAL INFECTION [None]
  - STEVENS-JOHNSON SYNDROME [None]
